FAERS Safety Report 12990591 (Version 1)
Quarter: 2016Q4

REPORT INFORMATION
  Report Type: Report from Study
  Country: GB (occurrence: GB)
  Receive Date: 20161201
  Receipt Date: 20161201
  Transmission Date: 20170207
  Serious: Yes (Death, Life-Threatening, Hospitalization)
  Sender: FDA-Public Use
  Company Number: GB-AMAG PHARMACEUTICALS, INC.-AMAG201602760

PATIENT

DRUGS (2)
  1. BUSCOPAN [Concomitant]
     Active Substance: BUTYLSCOPOLAMINE BROMIDE
     Indication: PRODUCT USED FOR UNKNOWN INDICATION
     Dosage: 13.5 UNK, UNK
     Route: 042
     Dates: start: 20131030, end: 20131030
  2. RIENSO [Suspect]
     Active Substance: FERUMOXYTOL
     Indication: IMAGING PROCEDURE
     Dosage: 13.5 UNK, UNK
     Route: 042
     Dates: start: 20131030, end: 20131030

REACTIONS (1)
  - Aortic aneurysm rupture [Fatal]

NARRATIVE: CASE EVENT DATE: 20161021
